FAERS Safety Report 15867354 (Version 6)
Quarter: 2019Q2

REPORT INFORMATION
  Report Type: Spontaneous
  Country: GR (occurrence: GR)
  Receive Date: 20190125
  Receipt Date: 20190530
  Transmission Date: 20190711
  Serious: Yes (Life-Threatening, Hospitalization, Other)
  Sender: FDA-Public Use
  Company Number: GR-ELI_LILLY_AND_COMPANY-GR201901008178

PATIENT
  Age: 45 Year
  Sex: Female
  Weight: 77 kg

DRUGS (5)
  1. OLANZAPINE. [Suspect]
     Active Substance: OLANZAPINE
     Indication: BIPOLAR DISORDER
     Dosage: 5 MG, UNKNOWN
     Route: 048
  2. OLANZAPINE. [Suspect]
     Active Substance: OLANZAPINE
     Dosage: 140 MG, 28 TABLETS COMBINED WITH ALCOHOL
     Route: 048
  3. OXCARBAZEPINE. [Suspect]
     Active Substance: OXCARBAZEPINE
     Indication: BIPOLAR DISORDER
     Dosage: 600 MG, UNKNOWN
     Route: 048
  4. OXCARBAZEPINE. [Suspect]
     Active Substance: OXCARBAZEPINE
     Dosage: 30000 MG, 50 TABLETS COMBINED WITH ALCOHOL
     Route: 048
  5. OXCARBAZEPINE. [Suspect]
     Active Substance: OXCARBAZEPINE
     Dosage: IMMEDIATE RELEASE 50 TABLETS
     Route: 048

REACTIONS (5)
  - Dysarthria [Recovering/Resolving]
  - Hyponatraemia [Recovered/Resolved]
  - Intentional overdose [Recovering/Resolving]
  - Toxicity to various agents [Recovering/Resolving]
  - Somnolence [Recovered/Resolved]
